FAERS Safety Report 16383568 (Version 1)
Quarter: 2019Q2

REPORT INFORMATION
  Report Type: Spontaneous
  Country: US (occurrence: US)
  Receive Date: 20190426
  Receipt Date: 20190426
  Transmission Date: 20190711
  Serious: Yes (Hospitalization)
  Sender: FDA-Public Use
  Company Number: None

PATIENT
  Sex: Female

DRUGS (8)
  1. ENALAPRIL [Concomitant]
     Active Substance: ENALAPRIL
  2. MELOXICAM. [Concomitant]
     Active Substance: MELOXICAM
  3. METHOCARBOMOL [Concomitant]
     Active Substance: METHOCARBAMOL
  4. CLOMAZEPAN [Concomitant]
  5. FLUOXETINE [Concomitant]
     Active Substance: FLUOXETINE HYDROCHLORIDE
  6. HYDROC [Concomitant]
  7. HLOROT [Concomitant]
  8. REPATHA [Suspect]
     Active Substance: EVOLOCUMAB
     Indication: HYPERLIPIDAEMIA
     Dosage: ?          OTHER FREQUENCY:EVERY 2 WEEKS ;?
     Route: 058
     Dates: start: 20181105

REACTIONS (2)
  - Hospitalisation [None]
  - Therapy cessation [None]
